FAERS Safety Report 9437450 (Version 1)
Quarter: 2013Q3

REPORT INFORMATION
  Report Type: Spontaneous
  Country: US (occurrence: US)
  Receive Date: 20130802
  Receipt Date: 20130802
  Transmission Date: 20140515
  Serious: No
  Sender: FDA-Public Use
  Company Number: US-B.I. PHARMACEUTICALS,INC./RIDGEFIELD-2013-BI-22520BP

PATIENT
  Sex: Male
  Weight: 103 kg

DRUGS (4)
  1. SPIRIVA [Suspect]
     Indication: CHRONIC OBSTRUCTIVE PULMONARY DISEASE
     Dosage: 36 MCG
     Route: 055
     Dates: start: 2009
  2. ADVAIR [Concomitant]
  3. VENTOLIN [Concomitant]
  4. COMBIVENT RESPIMAT [Concomitant]
     Indication: CHRONIC OBSTRUCTIVE PULMONARY DISEASE
     Dosage: STRENGTH:20 MCG / 100MCG, DAILY DOSE:40 MCG/200MCG
     Route: 055
     Dates: start: 201306

REACTIONS (1)
  - Drug prescribing error [Not Recovered/Not Resolved]
